FAERS Safety Report 13664733 (Version 1)
Quarter: 2017Q2

REPORT INFORMATION
  Report Type: Spontaneous
  Country: DE (occurrence: DE)
  Receive Date: 20170619
  Receipt Date: 20170619
  Transmission Date: 20170830
  Serious: Yes (Other)
  Sender: FDA-Public Use
  Company Number: DE-BAYER-2017-111488

PATIENT
  Age: 34 Year
  Sex: Female

DRUGS (1)
  1. MIRENA [Suspect]
     Active Substance: LEVONORGESTREL
     Indication: CONTRACEPTION
     Dosage: 20 MCG/24HR, CONT
     Route: 015
     Dates: start: 201105, end: 201211

REACTIONS (11)
  - Depression [Unknown]
  - Anxiety disorder [Unknown]
  - Illusion [Unknown]
  - Tremor [Unknown]
  - Loss of employment [Unknown]
  - Autoimmune thyroiditis [Unknown]
  - Loss of consciousness [Unknown]
  - Dizziness [Unknown]
  - Disturbance in attention [Unknown]
  - Panic disorder [Unknown]
  - Disorientation [Unknown]
